FAERS Safety Report 11162023 (Version 1)
Quarter: 2015Q2

REPORT INFORMATION
  Report Type: Spontaneous
  Country: US (occurrence: US)
  Receive Date: 20150604
  Receipt Date: 20150604
  Transmission Date: 20150821
  Serious: No
  Sender: FDA-Public Use
  Company Number: US-SA-2014SA116040

PATIENT
  Age: 67 Year
  Sex: Male

DRUGS (1)
  1. LANTUS [Suspect]
     Active Substance: INSULIN GLARGINE
     Indication: DIABETES MELLITUS
     Route: 065
     Dates: start: 20140821

REACTIONS (5)
  - Tremor [Unknown]
  - Feeling abnormal [Unknown]
  - Drug administration error [Unknown]
  - Hypoglycaemia [Unknown]
  - Hyperglycaemia [Unknown]
